FAERS Safety Report 26067680 (Version 1)
Quarter: 2025Q4

REPORT INFORMATION
  Report Type: Report from Study
  Country: EU (occurrence: EU)
  Receive Date: 20251120
  Receipt Date: 20251120
  Transmission Date: 20260118
  Serious: Yes (Other)
  Sender: ROCHE
  Company Number: EU-ROCHE-10000240601

PATIENT
  Age: 89 Year
  Sex: Male

DRUGS (11)
  1. FARICIMAB [Suspect]
     Active Substance: FARICIMAB
     Indication: Neovascular age-related macular degeneration
     Dosage: DOSE LAST STUDY DRUG ADMIN PRIOR AE IS 6 MG?TOTAL VOLUME PRIOR AE IS 0.05 ML. START DATE AND END DAT
     Route: 050
     Dates: start: 20231207
  2. EDOXABAN 30MG [Concomitant]
     Indication: Product used for unknown indication
     Dosage: GIVEN FOR PROPHYLAXIS IS YES
  3. BISOPROLOL 2.5MG [Concomitant]
     Indication: Product used for unknown indication
  4. RAMIPRIL [Concomitant]
     Active Substance: RAMIPRIL
     Indication: Product used for unknown indication
  5. PANTOPRAZOLE SODIUM [Concomitant]
     Active Substance: PANTOPRAZOLE SODIUM
     Indication: Product used for unknown indication
     Dosage: GIVEN FOR PROPHYLAXIS IS YES
  6. MIRTAZAPINE [Concomitant]
     Active Substance: MIRTAZAPINE
     Indication: Product used for unknown indication
  7. SERTRALIN 50MG [Concomitant]
     Indication: Product used for unknown indication
  8. MELPERONE [Concomitant]
     Active Substance: MELPERONE
     Indication: Product used for unknown indication
  9. TAMSULOSIN [Concomitant]
     Active Substance: TAMSULOSIN
     Indication: Product used for unknown indication
     Dosage: GIVEN FOR PROPHYLAXIS IS YES
  10. METAMIZOL 500MG [Concomitant]
     Indication: Product used for unknown indication
     Dosage: GIVEN FOR PROPHYLAXIS IS YES
  11. FARICIMAB LEFT [Concomitant]
     Indication: Macular degeneration
     Dates: start: 20231205

REACTIONS (2)
  - Retinal haemorrhage [Recovered/Resolved]
  - Conjunctival haemorrhage [Recovered/Resolved]

NARRATIVE: CASE EVENT DATE: 20250318
